FAERS Safety Report 5028430-8 (Version None)
Quarter: 2006Q2

REPORT INFORMATION
  Report Type: 
  Country: None (occurrence: None)
  Receive Date: 20060617
  Receipt Date: 20060606
  Transmission Date: 20061013
  Serious: Yes (Other)
  Sender: FDA-Public Use
  Company Number: PHEH2006US07383

PATIENT
  Age: 59 Year
  Sex: Male

DRUGS (13)
  1. ALIMTA [Concomitant]
     Dates: start: 20051201
  2. KYTRIL [Concomitant]
     Indication: PREMEDICATION
     Dates: start: 20051201
  3. DEXAMETHASONE TAB [Concomitant]
     Indication: PREMEDICATION
     Dates: start: 20051201
  4. TAXOTERE [Concomitant]
     Dates: start: 20060401
  5. MORPHINE [Concomitant]
  6. COLACE [Concomitant]
  7. LASIX [Concomitant]
  8. SUTENT [Concomitant]
  9. TAMSULOSIN HYDROCHLORIDE [Concomitant]
     Indication: BENIGN PROSTATIC HYPERPLASIA
  10. ATACAND [Concomitant]
     Indication: HYPERTENSION
  11. ZOMETA [Suspect]
     Indication: METASTASES TO BONE
     Dosage: 4 MG, UNK
     Dates: start: 20051201, end: 20051201
  12. ZOMETA [Suspect]
     Dosage: 4 MG, UNK
     Dates: start: 20060101, end: 20060101
  13. ZOMETA [Suspect]
     Dosage: 4 MG, UNK
     Dates: start: 20060301, end: 20060301

REACTIONS (1)
  - OSTEONECROSIS [None]
